FAERS Safety Report 24540526 (Version 1)
Quarter: 2024Q4

REPORT INFORMATION
  Report Type: Report from Study
  Country: IE (occurrence: IE)
  Receive Date: 20241023
  Receipt Date: 20241023
  Transmission Date: 20250115
  Serious: Yes (Other)
  Sender: ROCHE
  Company Number: IE-ROCHE-3541773

PATIENT
  Sex: Female

DRUGS (1)
  1. OCREVUS [Suspect]
     Active Substance: OCRELIZUMAB
     Indication: Product used for unknown indication
     Dosage: 60MGS X 2 VIALS 300MGS
     Route: 042

REACTIONS (2)
  - Psoriasis [Recovering/Resolving]
  - Bacterial vulvovaginitis [Unknown]
